FAERS Safety Report 9069242 (Version 4)
Quarter: 2014Q2

REPORT INFORMATION
  Report Type: Report from Study
  Country: AU (occurrence: AU)
  Receive Date: 20130215
  Receipt Date: 20140401
  Transmission Date: 20141212
  Serious: Yes (Hospitalization, Other)
  Sender: FDA-Public Use
  Company Number: AU-ROCHE-1191464

PATIENT
  Age: 56 Year
  Sex: Female

DRUGS (3)
  1. ACTEMRA [Suspect]
     Indication: RHEUMATOID ARTHRITIS
     Route: 042
     Dates: start: 20121220, end: 20130903
  2. ACTEMRA [Suspect]
     Route: 042
     Dates: start: 20140107
  3. ACTONEL [Concomitant]
     Route: 048

REACTIONS (2)
  - Pneumonia [Recovered/Resolved]
  - Wrist fracture [Recovering/Resolving]
